FAERS Safety Report 7558573-6 (Version None)
Quarter: 2011Q2

REPORT INFORMATION
  Report Type: 
  Country: None (occurrence: None)
  Receive Date: 20110621
  Receipt Date: 20110610
  Transmission Date: 20111010
  Serious: Yes (Hospitalization)
  Sender: FDA-Public Use
  Company Number: FR-BIOGENIDEC-2011BI017673

PATIENT
  Age: 46 Year
  Sex: Male

DRUGS (6)
  1. LEVETIRACETAM [Concomitant]
     Indication: CONVULSION PROPHYLAXIS
     Route: 048
     Dates: start: 20080901
  2. TYSABRI [Suspect]
     Indication: MULTIPLE SCLEROSIS
     Route: 042
     Dates: start: 20080923
  3. LYSINE ACETYLSALICYLATE [Concomitant]
     Indication: ANTIINFLAMMATORY THERAPY
     Route: 048
     Dates: start: 20110416
  4. PHLOROGLUCINOL [Concomitant]
     Indication: MUSCLE SPASMS
     Route: 048
     Dates: start: 20110416
  5. ESOMEPRAZOLE MAGNESIUM [Concomitant]
     Indication: GASTRIC ULCER
     Route: 048
     Dates: start: 20110416
  6. HEPTAMINOL [Concomitant]
     Indication: HYPOTENSION
     Route: 048
     Dates: start: 20020601

REACTIONS (1)
  - CHOLECYSTITIS ACUTE [None]
